FAERS Safety Report 20322505 (Version 1)
Quarter: 2022Q1

REPORT INFORMATION
  Report Type: Report from Study
  Country: FR (occurrence: FR)
  Receive Date: 20220111
  Receipt Date: 20220111
  Transmission Date: 20220423
  Serious: Yes (Other)
  Sender: FDA-Public Use
  Company Number: FR-SERVIER-S22000070

PATIENT

DRUGS (8)
  1. PEGASPARGASE [Suspect]
     Active Substance: PEGASPARGASE
     Indication: Acute lymphocytic leukaemia
     Dosage: 875 IU, D4
     Route: 042
     Dates: start: 20210831, end: 20211019
  2. CYTARABINE [Suspect]
     Active Substance: CYTARABINE
     Indication: Acute lymphocytic leukaemia
     Dosage: 56 MG, D29 TO D34,  D38 TO D41
     Route: 042
     Dates: start: 20210831, end: 20211019
  3. TN UNSPECIFIED [Concomitant]
     Indication: Acute lymphocytic leukaemia
     Dosage: 7 MG, D1 TO D14
     Route: 048
     Dates: start: 20210831, end: 20211019
  4. TN UNSPECIFIED [Concomitant]
     Indication: Acute lymphocytic leukaemia
     Dosage: 45.7 MG, D29 TO D42
     Route: 048
     Dates: start: 20210831, end: 20211019
  5. VINCRISTINE SULFATE [Concomitant]
     Active Substance: VINCRISTINE SULFATE
     Indication: Acute lymphocytic leukaemia
     Dosage: 1.1 MG, D1, D8, D15
     Route: 042
     Dates: start: 20210831, end: 20211019
  6. TN UNSPECIFIED [Concomitant]
     Indication: Acute lymphocytic leukaemia
     Dosage: 750 MG, D29
     Route: 042
     Dates: start: 20210831, end: 20211019
  7. TN UNSPECIFIED [Concomitant]
     Indication: Acute lymphocytic leukaemia
     Dosage: 17.5 MG, D1, D8, D15
     Route: 042
     Dates: start: 20210831, end: 20211019
  8. METHOTREXATE [Concomitant]
     Active Substance: METHOTREXATE
     Indication: Acute lymphocytic leukaemia
     Dosage: 12 MG, D4, D31
     Route: 037
     Dates: start: 20210831, end: 20211019

REACTIONS (2)
  - Hyperbilirubinaemia [Recovering/Resolving]
  - Viral infection [Recovered/Resolved]

NARRATIVE: CASE EVENT DATE: 20211015
